FAERS Safety Report 21554211 (Version 3)
Quarter: 2025Q2

REPORT INFORMATION
  Report Type: Spontaneous
  Country: DE (occurrence: DE)
  Receive Date: 20221104
  Receipt Date: 20250417
  Transmission Date: 20250717
  Serious: Yes (Other)
  Sender: ROCHE
  Company Number: DE-ROCHE-3212583

PATIENT
  Sex: Female

DRUGS (1)
  1. KADCYLA [Suspect]
     Active Substance: ADO-TRASTUZUMAB EMTANSINE
     Indication: Breast cancer metastatic
     Route: 065
     Dates: start: 2019

REACTIONS (5)
  - Subdural haemorrhage [Unknown]
  - Fall [Unknown]
  - Physical disability [Not Recovered/Not Resolved]
  - Thrombocytopenia [Not Recovered/Not Resolved]
  - Intracranial aneurysm [Not Recovered/Not Resolved]
